FAERS Safety Report 4930445-2 (Version None)
Quarter: 2006Q1

REPORT INFORMATION
  Report Type: 
  Country: None (occurrence: None)
  Receive Date: 20060118
  Receipt Date: 20050830
  Transmission Date: 20060701
  Serious: No
  Sender: FDA-Public Use
  Company Number: 2005001713

PATIENT
  Age: 58 Year
  Sex: Male

DRUGS (3)
  1. TARCEVA [Suspect]
     Indication: PANCREATIC CARCINOMA
     Dosage: 150 MG (QD), ORAL
     Route: 048
  2. KEFLEX [Concomitant]
  3. GEMCITABINE [Concomitant]

REACTIONS (1)
  - BLOOD GLUCOSE INCREASED [None]
